FAERS Safety Report 12324888 (Version 1)
Quarter: 2016Q2

REPORT INFORMATION
  Report Type: Report from Study
  Country: ES (occurrence: ES)
  Receive Date: 20160502
  Receipt Date: 20160502
  Transmission Date: 20160815
  Serious: Yes (Death)
  Sender: FDA-Public Use
  Company Number: ES-BAYER-2016-082209

PATIENT
  Age: 84 Year
  Sex: Male

DRUGS (9)
  1. ADIRO 300 MG GASTRO-RESISTANT TABLETS, 60 TABLETS [Suspect]
     Active Substance: ASPIRIN
     Indication: ISCHAEMIC STROKE
     Dosage: 300 MG, UNK
     Dates: start: 2010
  2. CARVEDILOL. [Concomitant]
     Active Substance: CARVEDILOL
     Dosage: 6.25 UNK, UNK
  3. FUROSEMIDE. [Concomitant]
     Active Substance: FUROSEMIDE
     Dosage: 40 MG, UNK
  4. LANTUS [Concomitant]
     Active Substance: INSULIN GLARGINE
  5. PRAVASTATIN [Concomitant]
     Active Substance: PRAVASTATIN\PRAVASTATIN SODIUM
     Dosage: 20 MG, UNK
  6. NITRO-DUR [Concomitant]
     Active Substance: NITROGLYCERIN
     Dosage: 10 MG, 12 HOURS PER DAY
  7. OMEPRAZOLE. [Concomitant]
     Active Substance: OMEPRAZOLE
  8. ATROPINE. [Concomitant]
     Active Substance: ATROPINE
  9. HALDOL [Concomitant]
     Active Substance: HALOPERIDOL

REACTIONS (2)
  - Subdural haematoma [Fatal]
  - Fall [None]

NARRATIVE: CASE EVENT DATE: 20151025
